FAERS Safety Report 12037436 (Version 1)
Quarter: 2016Q1

REPORT INFORMATION
  Report Type: Spontaneous
  Country: FR (occurrence: FR)
  Receive Date: 20160208
  Receipt Date: 20160208
  Transmission Date: 20160526
  Serious: Yes (Hospitalization)
  Sender: FDA-Public Use
  Company Number: FR-BAYER-2016-017427

PATIENT
  Age: 30 Year
  Sex: Male

DRUGS (12)
  1. BACTRIM [Suspect]
     Active Substance: SULFAMETHOXAZOLE\TRIMETHOPRIM
     Indication: PSEUDOMONAS TEST POSITIVE
  2. AZACTAM [Concomitant]
     Active Substance: AZTREONAM
     Indication: STAPHYLOCOCCUS TEST POSITIVE
     Dosage: UNK
     Dates: start: 20150315, end: 20150319
  3. TARGOCID [Concomitant]
     Active Substance: TEICOPLANIN
     Indication: PSEUDOMONAS TEST POSITIVE
     Dosage: UNK
     Dates: start: 20150224, end: 20150309
  4. CIFLOX [Suspect]
     Active Substance: CIPROFLOXACIN
     Indication: INFECTION
     Dosage: UNK
     Route: 048
     Dates: start: 20150309, end: 20150315
  5. CIFLOX [Suspect]
     Active Substance: CIPROFLOXACIN
     Indication: STAPHYLOCOCCUS TEST POSITIVE
  6. AZACTAM [Concomitant]
     Active Substance: AZTREONAM
     Indication: PSEUDOMONAS TEST POSITIVE
     Dosage: UNK
     Dates: start: 20150224, end: 20150309
  7. BACTRIM [Suspect]
     Active Substance: SULFAMETHOXAZOLE\TRIMETHOPRIM
     Indication: STAPHYLOCOCCUS TEST POSITIVE
  8. CIFLOX [Suspect]
     Active Substance: CIPROFLOXACIN
     Indication: PSEUDOMONAS TEST POSITIVE
     Dosage: UNK
     Dates: start: 20150223, end: 20150224
  9. FORTUM [Concomitant]
     Active Substance: CEFTAZIDIME
     Indication: STAPHYLOCOCCUS TEST POSITIVE
     Dosage: UNK
     Dates: start: 20150315
  10. TARGOCID [Concomitant]
     Active Substance: TEICOPLANIN
     Indication: STAPHYLOCOCCUS TEST POSITIVE
     Dosage: UNK
     Dates: start: 20150315
  11. FORTUM [Concomitant]
     Active Substance: CEFTAZIDIME
     Indication: PSEUDOMONAS TEST POSITIVE
     Dosage: UNK
     Dates: start: 20150223, end: 20150309
  12. BACTRIM [Suspect]
     Active Substance: SULFAMETHOXAZOLE\TRIMETHOPRIM
     Indication: INFECTION
     Dosage: UNK
     Route: 048
     Dates: start: 20150309, end: 20150315

REACTIONS (1)
  - Drug reaction with eosinophilia and systemic symptoms [Recovered/Resolved]

NARRATIVE: CASE EVENT DATE: 20150315
